FAERS Safety Report 7178444-7 (Version None)
Quarter: 2010Q4

REPORT INFORMATION
  Report Type: 
  Country: None (occurrence: None)
  Receive Date: 20101220
  Receipt Date: 20101209
  Transmission Date: 20110411
  Serious: Yes (Hospitalization)
  Sender: FDA-Public Use
  Company Number: US-WATSON-2010-15969

PATIENT
  Age: 35 Year
  Sex: Female

DRUGS (1)
  1. BACLOFEN [Suspect]
     Indication: OVERDOSE
     Dosage: 1200 MG, UNK

REACTIONS (7)
  - COMA [None]
  - ELECTROENCEPHALOGRAM ABNORMAL [None]
  - ENCEPHALOPATHY [None]
  - HYPOTHERMIA [None]
  - HYPOXIC-ISCHAEMIC ENCEPHALOPATHY [None]
  - OVERDOSE [None]
  - STATUS EPILEPTICUS [None]
